FAERS Safety Report 9814618 (Version 2)
Quarter: 2014Q1

REPORT INFORMATION
  Report Type: Spontaneous
  Country: JP (occurrence: JP)
  Receive Date: 20140113
  Receipt Date: 20140131
  Transmission Date: 20141002
  Serious: Yes (Other)
  Sender: FDA-Public Use
  Company Number: PHHY2014JP002804

PATIENT
  Age: 88 Year
  Sex: Female

DRUGS (2)
  1. EXELON PATCH [Suspect]
     Indication: DEMENTIA ALZHEIMER^S TYPE
     Dosage: 13.5 MG, DAILY
     Route: 062
  2. PROPITAN [Concomitant]
     Indication: PSYCHIATRIC SYMPTOM
     Dosage: 2.5 MG, UNK
     Route: 048

REACTIONS (1)
  - Depressed level of consciousness [Unknown]
